FAERS Safety Report 6759361-0 (Version None)
Quarter: 2010Q2

REPORT INFORMATION
  Report Type: 
  Country: None (occurrence: None)
  Receive Date: 20100607
  Receipt Date: 20100525
  Transmission Date: 20101027
  Serious: Yes (Other)
  Sender: FDA-Public Use
  Company Number: US-ELI_LILLY_AND_COMPANY-US201003005365

PATIENT
  Age: 50 Year
  Sex: Female

DRUGS (8)
  1. CYMBALTA [Suspect]
     Indication: FIBROMYALGIA
     Dosage: 30 MG, UNK
     Dates: start: 20091211
  2. GABAPENTIN [Concomitant]
     Dosage: 900 MG, UNK
  3. GLUCOSAMINE [Concomitant]
     Dosage: 600 MG, UNK
  4. VITAMINS, OTHER COMBINATIONS [Concomitant]
     Dosage: 1 UNK, UNK
  5. CALCIUM CARBONATE [Concomitant]
     Dosage: 1 UNK, UNK
  6. VICODIN [Concomitant]
     Dosage: 1 D/F, 2/D
  7. ULTRAM [Concomitant]
     Dosage: 50 MG, EVERY 8 HRS
  8. CONTRACEPTIVES NOS [Concomitant]
     Dosage: 1 D/F, DAILY (1/D)

REACTIONS (1)
  - DERMATITIS EXFOLIATIVE [None]
